FAERS Safety Report 9898375 (Version 3)
Quarter: 2014Q4

REPORT INFORMATION
  Report Type: Spontaneous
  Country: US (occurrence: US)
  Receive Date: 20140214
  Receipt Date: 20141219
  Transmission Date: 20150529
  Serious: Yes (Hospitalization, Other)
  Sender: FDA-Public Use
  Company Number: US-ELI_LILLY_AND_COMPANY-USA0509108645

PATIENT
  Age: 53 Year
  Sex: Female

DRUGS (8)
  1. TARCEVA                                 /USA/ [Concomitant]
     Indication: NON-SMALL CELL LUNG CANCER STAGE IV
  2. OXYCONTIN [Concomitant]
     Active Substance: OXYCODONE HYDROCHLORIDE
  3. RITALIN                                 /UNK/ [Concomitant]
  4. ZOFRAN                                  /GFR/ [Concomitant]
  5. ALIMTA [Suspect]
     Active Substance: PEMETREXED DISODIUM
     Indication: NON-SMALL CELL LUNG CANCER
     Dosage: 500 MG/M2, UNKNOWN
     Route: 042
     Dates: start: 200506, end: 200508
  6. NEURONTIN                               /UNK/ [Concomitant]
  7. ZOMETA [Concomitant]
     Active Substance: ZOLEDRONIC ACID
  8. MULTIVITAMINS [Concomitant]
     Active Substance: VITAMINS

REACTIONS (8)
  - Renal tubular acidosis [Recovering/Resolving]
  - Hypomagnesaemia [Unknown]
  - Acute kidney injury [Recovered/Resolved]
  - Blood electrolytes abnormal [Recovering/Resolving]
  - Hypophosphataemia [Unknown]
  - Nephrogenic diabetes insipidus [Unknown]
  - Pathological fracture [Unknown]
  - Blood potassium increased [Unknown]

NARRATIVE: CASE EVENT DATE: 200508
